FAERS Safety Report 10779207 (Version 1)
Quarter: 2015Q1

REPORT INFORMATION
  Report Type: Spontaneous
  Country: US (occurrence: None)
  Receive Date: 20150206
  Receipt Date: 20150206
  Transmission Date: 20150721
  Serious: No
  Sender: FDA-Public Use
  Company Number: None

PATIENT
  Sex: Male

DRUGS (1)
  1. INFED [Suspect]
     Active Substance: IRON DEXTRAN

REACTIONS (2)
  - Anaphylactic reaction [None]
  - Wrong technique in drug usage process [None]
